FAERS Safety Report 16571908 (Version 3)
Quarter: 2023Q1

REPORT INFORMATION
  Report Type: Spontaneous
  Country: US (occurrence: US)
  Receive Date: 20190715
  Receipt Date: 20230110
  Transmission Date: 20230418
  Serious: Yes (Other)
  Sender: FDA-Public Use
  Company Number: US-PFIZER INC-2019298497

PATIENT
  Age: 77 Year
  Sex: Female

DRUGS (1)
  1. METHOTREXATE SODIUM [Suspect]
     Active Substance: METHOTREXATE SODIUM
     Indication: Rheumatoid arthritis
     Dosage: UNK

REACTIONS (3)
  - Skin cancer [Unknown]
  - Cystitis [Unknown]
  - Skin papilloma [Unknown]

NARRATIVE: CASE EVENT DATE: 20220101
